FAERS Safety Report 18270990 (Version 1)
Quarter: 2020Q3

REPORT INFORMATION
  Report Type: Spontaneous
  Country: US (occurrence: US)
  Receive Date: 20200915
  Receipt Date: 20200915
  Transmission Date: 20201103
  Serious: Yes (Other)
  Sender: FDA-Public Use
  Company Number: US-NAPPMUNDI-USA-2020-0156094

PATIENT
  Age: 64 Year
  Sex: Male

DRUGS (2)
  1. OXYCONTIN [Suspect]
     Active Substance: OXYCODONE HYDROCHLORIDE
     Indication: INTERVERTEBRAL DISC PROTRUSION
     Dosage: UNK
     Route: 048
  2. OXYCODONE/ ACETAMINOPHEN TABLETS [Suspect]
     Active Substance: ACETAMINOPHEN\OXYCODONE HYDROCHLORIDE
     Indication: PRODUCT USED FOR UNKNOWN INDICATION
     Dosage: UNK
     Route: 048

REACTIONS (23)
  - Drug dependence [Unknown]
  - Mental disorder [Unknown]
  - Liver disorder [Unknown]
  - Pain [Unknown]
  - Tremor [Unknown]
  - Emotional distress [Unknown]
  - Learning disability [Unknown]
  - Mood swings [Unknown]
  - Psychological trauma [Unknown]
  - Thinking abnormal [Unknown]
  - Overdose [Unknown]
  - Bipolar disorder [Unknown]
  - Post-traumatic stress disorder [Unknown]
  - General physical condition abnormal [Unknown]
  - Abdominal pain upper [Unknown]
  - Illness [Unknown]
  - Nerve injury [Unknown]
  - Cardiac disorder [Unknown]
  - General physical health deterioration [Unknown]
  - Developmental delay [Unknown]
  - Headache [Unknown]
  - Vomiting [Unknown]
  - Depression [Unknown]
